FAERS Safety Report 5897987-7 (Version None)
Quarter: 2008Q3

REPORT INFORMATION
  Report Type: 
  Country: None (occurrence: None)
  Receive Date: 20080923
  Receipt Date: 20080909
  Transmission Date: 20090109
  Serious: Yes (Hospitalization)
  Sender: FDA-Public Use
  Company Number: BE-JNJFOC-20080902111

PATIENT
  Age: 69 Year
  Sex: Male

DRUGS (4)
  1. SPRYCEL [Suspect]
     Indication: MYELODYSPLASTIC SYNDROME
     Dosage: INTRAVENOUS
     Route: 042
  2. AMLODIPINE BESYLATE [Concomitant]
  3. CIPROFLOXACIN HCL [Concomitant]
  4. NOXAFIL [Concomitant]

REACTIONS (3)
  - EPILEPSY [None]
  - LOSS OF CONSCIOUSNESS [None]
  - PARTIAL SEIZURES [None]
